FAERS Safety Report 6164821-X (Version None)
Quarter: 2009Q2

REPORT INFORMATION
  Report Type: 
  Country: None (occurrence: None)
  Receive Date: 20090423
  Receipt Date: 20090414
  Transmission Date: 20091009
  Serious: Yes (Hospitalization)
  Sender: FDA-Public Use
  Company Number: PHHY2009JP14759

PATIENT
  Age: 66 Year
  Sex: Female

DRUGS (10)
  1. ICL670A ICL+DISTAB [Suspect]
     Indication: IRON OVERLOAD
     Dosage: 500MG DAILY
     Route: 048
     Dates: start: 20080910, end: 20090209
  2. AMOBAN [Concomitant]
     Dosage: 7.5MG
     Route: 048
     Dates: start: 20030606, end: 20090310
  3. CRAVIT [Concomitant]
     Dosage: 600MG
     Route: 048
     Dates: start: 20081021, end: 20081113
  4. GLAKAY [Concomitant]
     Indication: MYELODYSPLASTIC SYNDROME
     Dosage: 45MG
     Dates: start: 20090123, end: 20090131
  5. GRAN [Concomitant]
     Indication: MYELODYSPLASTIC SYNDROME
     Dosage: 75UG
     Route: 042
     Dates: start: 20090131, end: 20090310
  6. VANCOMYCIN HCL [Concomitant]
     Dosage: 2G
     Route: 042
     Dates: start: 20090205, end: 20090209
  7. FUNGUARD [Concomitant]
     Dosage: 150MG
     Route: 042
  8. VFEND [Concomitant]
     Dosage: 400MG
     Route: 048
     Dates: start: 20090206, end: 20090310
  9. FINIBAX [Concomitant]
     Dosage: 1G
     Route: 042
     Dates: start: 20090205, end: 20090215
  10. RED BLOOD CELLS [Concomitant]
     Dosage: 4 UNITS EVERY TWO WEEKS
     Dates: start: 20080910, end: 20090310

REACTIONS (5)
  - AGRANULOCYTOSIS [None]
  - PANCYTOPENIA [None]
  - PNEUMONIA FUNGAL [None]
  - PYREXIA [None]
  - RENAL IMPAIRMENT [None]
